FAERS Safety Report 24785213 (Version 1)
Quarter: 2024Q4

REPORT INFORMATION
  Report Type: Spontaneous
  Country: CN (occurrence: CN)
  Receive Date: 20241228
  Receipt Date: 20241228
  Transmission Date: 20250114
  Serious: Yes (Death, Other)
  Sender: AMGEN
  Company Number: CN-AMGEN-CHNSP2024251137

PATIENT
  Age: 51 Year
  Sex: Male

DRUGS (5)
  1. PEGFILGRASTIM [Suspect]
     Active Substance: PEGFILGRASTIM
     Indication: Liposarcoma
     Dosage: UNK
     Route: 065
  2. DOXORUBICIN [Concomitant]
     Active Substance: DOXORUBICIN
     Dosage: 75 MILLIGRAM/SQ. METER, QD (PER DAY, DAYS 1-3)
  3. DOXORUBICIN [Concomitant]
     Active Substance: DOXORUBICIN
     Dosage: 25 MILLIGRAM/SQ. METER, QD (PER DAY, DAYS 1-3)
  4. IFOSFAMIDE [Concomitant]
     Active Substance: IFOSFAMIDE
     Dosage: 10 GRAM PER SQUARE METRE
  5. MESNA [Concomitant]
     Active Substance: MESNA

REACTIONS (2)
  - Death [Fatal]
  - Liposarcoma metastatic [Unknown]
